FAERS Safety Report 6558418-7 (Version None)
Quarter: 2010Q1

REPORT INFORMATION
  Report Type: 
  Country: None (occurrence: None)
  Receive Date: 20100126
  Receipt Date: 20100111
  Transmission Date: 20100710
  Serious: Yes (Death)
  Sender: FDA-Public Use
  Company Number: 004602

PATIENT
  Age: 61 Year
  Sex: Male

DRUGS (8)
  1. ACETAMINOPHEN AND HYDROCODONE BITARTRATE [Suspect]
  2. STRYCHNINE [Suspect]
  3. OXYCODONE HCL [Suspect]
  4. ARSENIC [Suspect]
  5. TRAZODONE [Suspect]
  6. ETHANOL [Suspect]
  7. ACETAMINOPHEN- PROPOXYPHENE HCL TAB [Suspect]
  8. ACETAMINOPHEN W/PSEUDOEPHEDRINE (NOT SPECIFIED) [Suspect]

REACTIONS (10)
  - BLOOD PRESSURE INCREASED [None]
  - CARDIAC ARREST [None]
  - DELIRIUM [None]
  - HAEMATEMESIS [None]
  - HAEMATURIA [None]
  - HYPERHIDROSIS [None]
  - MUSCLE SPASMS [None]
  - SOMNOLENCE [None]
  - TREMOR [None]
  - VOMITING [None]
